FAERS Safety Report 5606115-4 (Version None)
Quarter: 2008Q1

REPORT INFORMATION
  Report Type: 
  Country: None (occurrence: None)
  Receive Date: 20080129
  Receipt Date: 20080122
  Transmission Date: 20080703
  Serious: Yes (Life-Threatening, Hospitalization)
  Sender: FDA-Public Use
  Company Number: US-GENENTECH-250868

PATIENT
  Sex: Female
  Weight: 84.5 kg

DRUGS (15)
  1. BEVACIZUMAB [Suspect]
     Indication: GLIOBLASTOMA MULTIFORME
     Dosage: 745 MG, Q2W
     Route: 042
     Dates: start: 20070124
  2. PROVIGIL [Concomitant]
     Indication: FATIGUE
     Dates: start: 20060718
  3. CODEINE [Concomitant]
     Indication: HEADACHE
     Dates: start: 20040520
  4. AMBIEN [Concomitant]
     Indication: INSOMNIA
     Dates: start: 20040520
  5. PROTONIX [Concomitant]
     Indication: DYSPEPSIA
     Dates: start: 20040520
  6. LEVOTHYROXINE SODIUM [Concomitant]
     Indication: HYPOTHYROIDISM
     Dosage: UNK, UNK
     Dates: start: 20050712
  7. NORTRIPTYLINE [Concomitant]
     Indication: DEPRESSION
     Dates: start: 20050520
  8. LOVENOX [Concomitant]
     Indication: DEEP VEIN THROMBOSIS
     Dates: start: 20041124
  9. KEPPRA [Concomitant]
     Indication: PROPHYLAXIS
     Dates: start: 20040713
  10. CELEBREX [Concomitant]
     Indication: JOINT STIFFNESS
     Dosage: UNK, UNK
     Dates: start: 20040831
  11. NORVASC [Concomitant]
     Indication: BLOOD PRESSURE INCREASED
     Dates: start: 20070214
  12. ZOFRAN [Concomitant]
     Indication: NAUSEA
     Dates: start: 20070207
  13. ARICEPT [Concomitant]
     Indication: AMNESIA
     Dates: start: 20070516
  14. ATIVAN [Concomitant]
     Indication: CONVULSION
     Dates: start: 20070527
  15. VALIUM [Concomitant]
     Indication: CONVULSION
     Dates: start: 20070527

REACTIONS (1)
  - BLOOD CHLORIDE INCREASED [None]
